FAERS Safety Report 19076740 (Version 1)
Quarter: 2021Q1

REPORT INFORMATION
  Report Type: Report from Study
  Country: CN (occurrence: CN)
  Receive Date: 20210331
  Receipt Date: 20210331
  Transmission Date: 20210420
  Serious: Yes (Other)
  Sender: FDA-Public Use
  Company Number: CN-JNJFOC-20210350454

PATIENT

DRUGS (1)
  1. REMICADE [Suspect]
     Active Substance: INFLIXIMAB
     Indication: PSORIASIS
     Route: 042

REACTIONS (5)
  - Infusion related reaction [Unknown]
  - Psoriatic arthropathy [Unknown]
  - Type IV hypersensitivity reaction [Unknown]
  - Neutropenia [Unknown]
  - Therapeutic response decreased [Unknown]
